FAERS Safety Report 9197928 (Version 2)
Quarter: 2013Q2

REPORT INFORMATION
  Report Type: Spontaneous
  Country: US (occurrence: US)
  Receive Date: 20130328
  Receipt Date: 20130423
  Transmission Date: 20140414
  Serious: Yes (Other)
  Sender: FDA-Public Use
  Company Number: CHPA2013US005150

PATIENT
  Age: 53 Year
  Sex: Male

DRUGS (2)
  1. 4 WAY SALINE MOISTURIZING MIST [Suspect]
     Indication: SINUS DISORDER
     Dosage: 2 SPRAYS IN EACH NOSTRIL, TID PRN, TWO BOTTLES/YEAR
  2. 4 WAY SALINE MOISTURIZING MIST [Suspect]
     Indication: SINUS HEADACHE

REACTIONS (5)
  - Sinus disorder [Recovered/Resolved]
  - Disease recurrence [Unknown]
  - Nasal congestion [Unknown]
  - Sinus headache [Recovered/Resolved]
  - Off label use [Unknown]
